FAERS Safety Report 9260129 (Version 1)
Quarter: 2013Q2

REPORT INFORMATION
  Report Type: Spontaneous
  Country: US (occurrence: US)
  Receive Date: 20130429
  Receipt Date: 20130429
  Transmission Date: 20140414
  Serious: Yes (Hospitalization)
  Sender: FDA-Public Use
  Company Number: US-BAYER-2013-052095

PATIENT
  Age: 31 Year
  Sex: Female
  Weight: 53.06 kg

DRUGS (7)
  1. YASMIN [Suspect]
  2. YAZ [Suspect]
  3. BUSPAR [Concomitant]
     Dosage: 5 MG, TWICE A DAY
  4. ZOLOFT [Concomitant]
  5. XANAX [Concomitant]
  6. DICLOFENAC SODIUM [Concomitant]
  7. MOTRIN [Concomitant]
     Indication: DYSMENORRHOEA
     Dosage: 800 MG, UNK
     Dates: start: 20060610

REACTIONS (1)
  - Cerebrovascular accident [Recovered/Resolved]
